FAERS Safety Report 25705815 (Version 1)
Quarter: 2025Q3

REPORT INFORMATION
  Report Type: Spontaneous
  Country: US (occurrence: None)
  Receive Date: 20250819
  Receipt Date: 20250819
  Transmission Date: 20251021
  Serious: Yes (Disabling, Other)
  Sender: FDA-CTU
  Company Number: None

PATIENT
  Age: 49 Year
  Sex: Female

DRUGS (1)
  1. LEXAPRO [Suspect]
     Active Substance: ESCITALOPRAM OXALATE

REACTIONS (4)
  - Nervous system disorder [None]
  - Major depression [None]
  - Impaired work ability [None]
  - Withdrawal syndrome [None]

NARRATIVE: CASE EVENT DATE: 20060130
